FAERS Safety Report 9421799 (Version 2)
Quarter: 2014Q1

REPORT INFORMATION
  Report Type: Report from Study
  Country: TW (occurrence: TW)
  Receive Date: 20130726
  Receipt Date: 20140114
  Transmission Date: 20141002
  Serious: Yes (Hospitalization)
  Sender: FDA-Public Use
  Company Number: TW-SHIRE-ALL1-2013-05013

PATIENT
  Age: 22 Year
  Sex: Male
  Weight: 43 kg

DRUGS (15)
  1. IDURSULFASE [Suspect]
     Indication: MUCOPOLYSACCHARIDOSIS II
     Dosage: UNK UNK, UNKNOWN
     Route: 041
     Dates: start: 20101020
  2. SERETIDE [Concomitant]
     Indication: RESPIRATORY DISORDER
     Dosage: 2 DF, 2X/DAY:BID
     Route: 055
     Dates: start: 20100918
  3. ALENDRONATE [Concomitant]
     Indication: OSTEOPOROSIS
     Dosage: 70 MG, 1X/WEEK
     Route: 048
     Dates: start: 20100521
  4. ACETAMINOPHEN [Concomitant]
     Indication: PAIN
     Dosage: 500 MG, AS REQ^D (Q6H)
     Route: 048
     Dates: start: 20100521
  5. ACETAMINOPHEN [Concomitant]
     Dosage: 500 MG, AS REQ^D (Q6H)
     Route: 048
     Dates: start: 20080616
  6. DEXTROMETHORPHAN [Concomitant]
     Indication: OBSTRUCTIVE AIRWAYS DISORDER
     Dosage: 20 MG, 4X/DAY:QID
     Route: 048
     Dates: start: 20100519
  7. CAPTOLIN [Concomitant]
     Indication: CARDIOVASCULAR DISORDER
     Dosage: 12.5 MG, 2X/DAY:BID
     Route: 048
     Dates: start: 20091207
  8. CAPTOLIN [Concomitant]
     Dosage: 12.5 MG, 2X/DAY:BID
     Route: 048
     Dates: start: 20090312
  9. DILTIAZEM [Concomitant]
     Indication: CARDIOVASCULAR DISORDER
     Dosage: 15 MG, 2X/DAY:BID (BEFORE MEALS)
     Route: 048
     Dates: start: 20091207
  10. DILTIAZEM [Concomitant]
     Dosage: 15 MG, 2X/DAY:BID (BEFORE MEALS)
     Route: 048
     Dates: start: 20090312
  11. MEQUITAZINE [Concomitant]
     Indication: RESPIRATORY DISORDER
     Dosage: 5 MG, 2X/DAY:BID
     Route: 048
     Dates: start: 20090720
  12. ACETYLCYSTEINE [Concomitant]
     Indication: PRODUCT USED FOR UNKNOWN INDICATION
     Dosage: 200 MG, 3X/DAY:TID
     Route: 048
     Dates: start: 20090720
  13. GUAIFENESIN [Concomitant]
     Indication: RESPIRATORY DISORDER
     Dosage: 20 DF (MG/ML), UNKNOWN
     Route: 048
     Dates: start: 20090720
  14. PLATYCODON GRANDIFLORUM [Concomitant]
     Indication: COUGH
     Dosage: 6 DF, UNKNOWN
     Route: 048
     Dates: start: 20090306
  15. DIGOXIN [Concomitant]
     Indication: CARDIOVASCULAR DISORDER
     Dosage: 0.125 MG, 1X/DAY:QD
     Route: 048
     Dates: start: 20060928

REACTIONS (1)
  - Bronchopneumonia [Recovered/Resolved]
